FAERS Safety Report 5452208-4 (Version None)
Quarter: 2007Q3

REPORT INFORMATION
  Report Type: 
  Country: None (occurrence: None)
  Receive Date: 20070912
  Receipt Date: 20070904
  Transmission Date: 20080115
  Serious: Yes (Hospitalization)
  Sender: FDA-Public Use
  Company Number: 163-21880-07081127

PATIENT
  Age: 46 Year
  Sex: Female
  Weight: 105.1 kg

DRUGS (9)
  1. REVLIMID [Suspect]
     Indication: THYROID CANCER
     Dosage: 25 MG, 1 IN 1 D, ORAL
     Route: 048
     Dates: start: 20070104, end: 20070512
  2. REVLIMID [Suspect]
     Indication: THYROID CANCER
     Dosage: 25 MG, 1 IN 1 D, ORAL
     Route: 048
     Dates: start: 20070517
  3. DEXAMETHASONE TAB [Concomitant]
  4. DOSS (COLOXYL WITH DANTHRON) [Concomitant]
  5. SYNTHROID [Concomitant]
  6. FISH OIL (FISH OIL) [Concomitant]
  7. ASCORBIC ACID [Concomitant]
  8. LEVETIRACETAM [Concomitant]
  9. OMEPRAZOLE [Concomitant]

REACTIONS (4)
  - MALIGNANT NEOPLASM PROGRESSION [None]
  - METASTASES TO BONE [None]
  - METASTASES TO CENTRAL NERVOUS SYSTEM [None]
  - THYROID CANCER METASTATIC [None]
